FAERS Safety Report 23501946 (Version 4)
Quarter: 2024Q3

REPORT INFORMATION
  Report Type: Spontaneous
  Country: US (occurrence: US)
  Receive Date: 20240208
  Receipt Date: 20240715
  Transmission Date: 20241017
  Serious: No
  Sender: PFIZER
  Company Number: US-PFIZER INC-202300022015

PATIENT
  Age: 69 Year
  Sex: Female
  Weight: 100.24 kg

DRUGS (7)
  1. TIKOSYN [Suspect]
     Active Substance: DOFETILIDE
     Indication: Post procedural complication
     Dosage: 1.25 MG, 2X/DAY
  2. TIKOSYN [Suspect]
     Active Substance: DOFETILIDE
     Indication: Atrial fibrillation
     Dosage: 125MG TWO TIMES A DAY
  3. OZEMPIC [Concomitant]
     Active Substance: SEMAGLUTIDE
     Indication: Diabetes mellitus
     Dosage: ONCE WEEKLY ON AND OFF
  4. TRULICITY [Concomitant]
     Active Substance: DULAGLUTIDE
     Indication: Diabetes mellitus
     Dosage: ONCE WEEKLY ON AND OFF
  5. MOUNJARO [Concomitant]
     Active Substance: TIRZEPATIDE
     Indication: Diabetes mellitus
     Dosage: ONCE WEEKLY ON AND OFF
  6. BASAGLAR [Concomitant]
     Active Substance: INSULIN GLARGINE
     Indication: Diabetes mellitus
     Dosage: UNK
  7. HUMALOG [Concomitant]
     Active Substance: INSULIN LISPRO
     Indication: Diabetes mellitus
     Dosage: UNK

REACTIONS (2)
  - Prescribed overdose [Unknown]
  - Blood glucose abnormal [Unknown]
